FAERS Safety Report 15301474 (Version 1)
Quarter: 2018Q3

REPORT INFORMATION
  Report Type: Spontaneous
  Country: US (occurrence: US)
  Receive Date: 20180821
  Receipt Date: 20180821
  Transmission Date: 20181010
  Serious: Yes (Other)
  Sender: FDA-Public Use
  Company Number: US-SA-2018SA111519

PATIENT
  Age: 52 Year
  Sex: Female
  Weight: 81.6 kg

DRUGS (5)
  1. NEOSAR [Concomitant]
     Active Substance: CYCLOPHOSPHAMIDE
  2. ATORVASTATIN [Concomitant]
     Active Substance: ATORVASTATIN
  3. TAXOTERE [Suspect]
     Active Substance: DOCETAXEL
     Indication: BREAST CANCER
     Dosage: UNK UNK,UNK
     Route: 042
     Dates: start: 20150129, end: 20150402
  4. TAXOTERE [Suspect]
     Active Substance: DOCETAXEL
     Dosage: UNK
     Route: 042
     Dates: start: 20150402, end: 20150402
  5. TRIAMTERENE. [Concomitant]
     Active Substance: TRIAMTERENE

REACTIONS (2)
  - Psychological trauma [Unknown]
  - Alopecia [Recovering/Resolving]

NARRATIVE: CASE EVENT DATE: 201501
